FAERS Safety Report 16238173 (Version 2)
Quarter: 2019Q2

REPORT INFORMATION
  Report Type: Spontaneous
  Country: US (occurrence: US)
  Receive Date: 20190425
  Receipt Date: 20190520
  Transmission Date: 20190711
  Serious: No
  Sender: FDA-Public Use
  Company Number: US-PFIZER INC-2019170005

PATIENT
  Age: 38 Year
  Sex: Female

DRUGS (1)
  1. XELJANZ [Suspect]
     Active Substance: TOFACITINIB CITRATE
     Indication: ALOPECIA
     Dosage: 5 MG, UNK

REACTIONS (4)
  - Off label use [Unknown]
  - Acne [Unknown]
  - Nasal congestion [Unknown]
  - Drug effective for unapproved indication [Unknown]
